FAERS Safety Report 6539678-5 (Version None)
Quarter: 2010Q1

REPORT INFORMATION
  Report Type: 
  Country: None (occurrence: None)
  Receive Date: 20100115
  Receipt Date: 20100112
  Transmission Date: 20100710
  Serious: Yes (Hospitalization)
  Sender: FDA-Public Use
  Company Number: BR-SANOFI-AVENTIS-2009SA011682

PATIENT
  Sex: Female
  Weight: 96 kg

DRUGS (6)
  1. LANTUS [Suspect]
     Indication: TYPE 2 DIABETES MELLITUS
     Route: 058
     Dates: start: 20070101
  2. AUTOPEN 24 [Suspect]
  3. ENALAPRIL MALEATE [Concomitant]
     Indication: HYPERTENSION
     Dosage: 1 TABLET AT LUNCH AND 1 TABLET AT DINNER
     Route: 048
     Dates: start: 19990101
  4. PANTOPRAZOLE [Concomitant]
     Dosage: FASTING
     Route: 048
     Dates: start: 20010101
  5. ALL OTHER THERAPEUTIC PRODUCTS [Concomitant]
     Route: 048
  6. ALL OTHER THERAPEUTIC PRODUCTS [Concomitant]
     Dosage: 10:00 PM
     Route: 048

REACTIONS (7)
  - EYE PAIN [None]
  - EYE PRURITUS [None]
  - HYPERGLYCAEMIA [None]
  - INTRAOCULAR PRESSURE INCREASED [None]
  - RESPIRATORY DISORDER [None]
  - SEPSIS [None]
  - URINARY TRACT INFECTION [None]
